FAERS Safety Report 9890469 (Version 1)
Quarter: 2014Q1

REPORT INFORMATION
  Report Type: Spontaneous
  Country: US (occurrence: None)
  Receive Date: 20140211
  Receipt Date: 20140211
  Transmission Date: 20141002
  Serious: No
  Sender: FDA-Public Use
  Company Number: None

PATIENT
  Age: 94 Year
  Sex: Female
  Weight: 68.04 kg

DRUGS (9)
  1. EYLEA [Suspect]
     Indication: AGE-RELATED MACULAR DEGENERATION
     Route: 047
     Dates: start: 20131204, end: 20131204
  2. AMLODIPINE/BENAZEPRIL [Concomitant]
  3. DOGOXIN [Concomitant]
  4. FENOFIBRATE [Concomitant]
  5. OCUVITE [Concomitant]
  6. ASPIRIN [Concomitant]
  7. VITAMIN D3 [Concomitant]
  8. VITAMIN C [Concomitant]
  9. EQUATE [Concomitant]

REACTIONS (1)
  - Anterior chamber inflammation [None]
